FAERS Safety Report 25573964 (Version 3)
Quarter: 2025Q3

REPORT INFORMATION
  Report Type: Report from Study
  Country: US (occurrence: US)
  Receive Date: 20250717
  Receipt Date: 20250915
  Transmission Date: 20251021
  Serious: Yes (Other)
  Sender: DECIPHERA PHARMACEUTICALS
  Company Number: US-DECIPHERA PHARMACEUTICALS LLC-2025US000839

PATIENT
  Age: 82 Year
  Sex: Male
  Weight: 106.98 kg

DRUGS (2)
  1. QINLOCK [Suspect]
     Active Substance: RIPRETINIB
     Indication: Gastrointestinal stromal tumour
     Dosage: 150 MILLIGRAM, QD
     Route: 048
     Dates: start: 202501, end: 2025
  2. QINLOCK [Suspect]
     Active Substance: RIPRETINIB
     Dosage: 100 MILLIGRAM, BID (1 TABLET, BID)
     Route: 048
     Dates: start: 2025

REACTIONS (8)
  - Metastases to liver [Unknown]
  - Feeling abnormal [Unknown]
  - Dysphonia [Unknown]
  - Abdominal discomfort [Unknown]
  - Increased need for sleep [Unknown]
  - Muscular weakness [Unknown]
  - Weight decreased [Unknown]
  - Pruritus [Recovered/Resolved]

NARRATIVE: CASE EVENT DATE: 20250101
